FAERS Safety Report 24716978 (Version 1)
Quarter: 2024Q4

REPORT INFORMATION
  Report Type: Other
  Country: US (occurrence: US)
  Receive Date: 20241210
  Receipt Date: 20241210
  Transmission Date: 20250114
  Serious: Yes (Hospitalization)
  Sender: WES PHARMA INC
  Company Number: US-WES Pharma Inc-2166821

PATIENT
  Age: 76 Year
  Sex: Male

DRUGS (7)
  1. OXYCODONE HYDROCHLORIDE [Suspect]
     Active Substance: OXYCODONE HYDROCHLORIDE
     Indication: Procedural pain
  2. REMIFENTANIL HYDROCHLORIDE [Suspect]
     Active Substance: REMIFENTANIL HYDROCHLORIDE
  3. PROPOFOL [Concomitant]
     Active Substance: PROPOFOL
  4. KETAMINE HYDROCHLORIDE [Concomitant]
     Active Substance: KETAMINE HYDROCHLORIDE
  5. FENTANYL [Concomitant]
     Active Substance: FENTANYL
  6. HYDROMORPHONE HCL [Suspect]
     Active Substance: HYDROMORPHONE HYDROCHLORIDE
  7. SUFENTANIL CITRATE [Suspect]
     Active Substance: SUFENTANIL CITRATE

REACTIONS (1)
  - Hyperaesthesia [Recovering/Resolving]
